FAERS Safety Report 22241046 (Version 1)
Quarter: 2023Q2

REPORT INFORMATION
  Report Type: Report from Study
  Country: US (occurrence: US)
  Receive Date: 20230421
  Receipt Date: 20230421
  Transmission Date: 20230722
  Serious: Yes (Hospitalization)
  Sender: FDA-Public Use
  Company Number: US-ARGENX-2022-ARGX-US002493

PATIENT

DRUGS (2)
  1. VYVGART [Suspect]
     Active Substance: EFGARTIGIMOD ALFA-FCAB
     Indication: Myasthenia gravis
     Dosage: UNK MG/KG
     Route: 042
     Dates: start: 20221110
  2. VYVGART [Suspect]
     Active Substance: EFGARTIGIMOD ALFA-FCAB
     Dosage: 10 MG/KG
     Route: 042
     Dates: start: 20230316

REACTIONS (7)
  - Bile duct stone [Unknown]
  - Cough [Unknown]
  - Acute sinusitis [Unknown]
  - Rhinorrhoea [Recovered/Resolved]
  - Peripheral swelling [Unknown]
  - Livedo reticularis [Unknown]
  - Blood urine present [Unknown]
